FAERS Safety Report 5590442-3 (Version None)
Quarter: 2008Q1

REPORT INFORMATION
  Report Type: 
  Country: None (occurrence: None)
  Receive Date: 20080114
  Receipt Date: 20071217
  Transmission Date: 20080703
  Serious: No
  Sender: FDA-Public Use
  Company Number: US-BOEHRINGER INGELHEIM PHARMACEUTICALS, INC.-2007-BP-26422BP

PATIENT
  Age: 79 Year
  Sex: Male

DRUGS (6)
  1. ZANTAC 75 [Suspect]
     Indication: DYSPEPSIA
     Route: 048
     Dates: start: 20061201
  2. ISOSORBIDE MONONITRATE [Concomitant]
  3. TOPROL-XL [Concomitant]
  4. DIOVAN HCT [Concomitant]
  5. LIPITOR [Concomitant]
  6. DARVOCET-N 100 [Concomitant]

REACTIONS (1)
  - ALOPECIA [None]
